FAERS Safety Report 5931017-3 (Version None)
Quarter: 2008Q4

REPORT INFORMATION
  Report Type: 
  Country: None (occurrence: None)
  Receive Date: 20081027
  Receipt Date: 20081023
  Transmission Date: 20090506
  Serious: Yes (Life-Threatening)
  Sender: FDA-Public Use
  Company Number: FR-ASTRAZENECA-2008CG01554

PATIENT
  Age: 31 Year
  Sex: Female

DRUGS (2)
  1. LIDOCAINE [Suspect]
     Route: 058
     Dates: start: 20080823, end: 20080823
  2. XYLOCAINE [Suspect]
     Route: 058

REACTIONS (3)
  - CARDIAC ARREST [None]
  - CONVULSION [None]
  - WRONG DRUG ADMINISTERED [None]
